FAERS Safety Report 9232916 (Version 1)
Quarter: 2013Q2

REPORT INFORMATION
  Report Type: Spontaneous
  Country: US (occurrence: None)
  Receive Date: 20130415
  Receipt Date: 20130415
  Transmission Date: 20140414
  Serious: Yes (Other)
  Sender: FDA-Public Use
  Company Number: None

PATIENT
  Age: 12 Year
  Sex: Male
  Weight: 37.65 kg

DRUGS (1)
  1. TAMIFLU [Suspect]
     Indication: INFLUENZA
     Dosage: 2 CAP 2/DAY PO
     Route: 048
     Dates: start: 20130411, end: 20130411

REACTIONS (4)
  - Abdominal pain upper [None]
  - Chest discomfort [None]
  - Dyspnoea [None]
  - Chest pain [None]
